FAERS Safety Report 18481891 (Version 4)
Quarter: 2021Q1

REPORT INFORMATION
  Report Type: Spontaneous
  Country: US (occurrence: US)
  Receive Date: 20201109
  Receipt Date: 20210312
  Transmission Date: 20210419
  Serious: No
  Sender: FDA-Public Use
  Company Number: US-PFIZER INC-2020421840

PATIENT
  Age: 52 Year
  Sex: Female

DRUGS (2)
  1. IBRANCE [Suspect]
     Active Substance: PALBOCICLIB
     Dosage: 125 MG, CYCLIC (21 DAYS ON, 7 DAYS OFF ON A 28 DAY CYCLE)
     Dates: end: 20210114
  2. IBRANCE [Suspect]
     Active Substance: PALBOCICLIB
     Indication: BREAST CANCER FEMALE
     Dosage: 125 MG, CYCLIC, (21 DAYS ON, 7 DAYS OFF ON A 28 DAY CYCLE)
     Dates: start: 20201023, end: 2020

REACTIONS (9)
  - Blood count abnormal [Unknown]
  - Oropharyngeal pain [Recovering/Resolving]
  - Vomiting [Unknown]
  - Neoplasm progression [Unknown]
  - Feeding disorder [Recovering/Resolving]
  - Nausea [Unknown]
  - Constipation [Not Recovered/Not Resolved]
  - Epigastric discomfort [Recovered/Resolved]
  - Off label use [Unknown]

NARRATIVE: CASE EVENT DATE: 2020
